FAERS Safety Report 11462059 (Version 1)
Quarter: 2015Q3

REPORT INFORMATION
  Report Type: Spontaneous
  Country: US (occurrence: US)
  Receive Date: 20150831
  Receipt Date: 20150831
  Transmission Date: 20151125
  Serious: No
  Sender: FDA-Public Use
  Company Number: US-ELI_LILLY_AND_COMPANY-US201009006924

PATIENT
  Age: 65 Year
  Sex: Female

DRUGS (2)
  1. HORMONES [Concomitant]
     Active Substance: UNSPECIFIED INGREDIENT
  2. CYMBALTA [Suspect]
     Active Substance: DULOXETINE HYDROCHLORIDE
     Indication: DEPRESSION
     Dosage: 60 MG, DAILY (1/D)

REACTIONS (6)
  - Hyperhidrosis [Not Recovered/Not Resolved]
  - Platelet count increased [Unknown]
  - Blood potassium increased [Unknown]
  - Arthralgia [Not Recovered/Not Resolved]
  - Hot flush [Not Recovered/Not Resolved]
  - Fibromyalgia [Not Recovered/Not Resolved]
